FAERS Safety Report 6933867-3 (Version None)
Quarter: 2010Q3

REPORT INFORMATION
  Report Type: 
  Country: None (occurrence: None)
  Receive Date: 20100820
  Receipt Date: 20100812
  Transmission Date: 20110219
  Serious: Yes (Other)
  Sender: FDA-Public Use
  Company Number: US-ROCHE-641231

PATIENT
  Sex: Female

DRUGS (6)
  1. BEVACIZUMAB [Suspect]
     Route: 065
  2. LUCENTIS [Suspect]
     Route: 031
  3. ZYMAR [Concomitant]
     Indication: PREMEDICATION
  4. ACTOPLUS MET [Concomitant]
     Dosage: 1 UNK, BID
     Route: 048
     Dates: start: 20090401
  5. HYZAAR [Concomitant]
     Indication: PRODUCT USED FOR UNKNOWN INDICATION
     Dosage: 1 UNK, QD
     Route: 048
  6. INSULIN [Concomitant]
     Dosage: UNK
     Dates: start: 20090401, end: 20090501

REACTIONS (1)
  - ENDOPHTHALMITIS [None]
